FAERS Safety Report 6054727-9 (Version None)
Quarter: 2009Q1

REPORT INFORMATION
  Report Type: 
  Country: None (occurrence: None)
  Receive Date: 20090128
  Receipt Date: 20090121
  Transmission Date: 20090719
  Serious: Yes (Hospitalization)
  Sender: FDA-Public Use
  Company Number: DE-BRISTOL-MYERS SQUIBB COMPANY-14482095

PATIENT
  Age: 68 Year
  Sex: Female
  Weight: 63 kg

DRUGS (4)
  1. CYCLOPHOSPHAMIDE [Suspect]
     Indication: BREAST CANCER
     Dosage: STOPPPED ON 30APR08.
     Route: 042
     Dates: start: 20080402, end: 20080402
  2. TAXOL [Suspect]
     Indication: BREAST CANCER
     Dosage: STARTED ON 20FEB08.
     Route: 042
     Dates: start: 20080319, end: 20080319
  3. EPIRUBICIN [Suspect]
     Indication: BREAST CANCER
     Dosage: STARTED ON 09JAN08.
     Route: 042
     Dates: start: 20080206, end: 20080206
  4. NEULASTA [Concomitant]
     Route: 058
     Dates: start: 20080417, end: 20080417

REACTIONS (2)
  - GASTRITIS [None]
  - URINARY TRACT DISORDER [None]
